FAERS Safety Report 8841678 (Version 1)
Quarter: 2012Q4

REPORT INFORMATION
  Report Type: 
  Country: US (occurrence: US)
  Receive Date: 20121015
  Receipt Date: 20121015
  Transmission Date: 20130627
  Serious: No
  Sender: FDA-Public Use
  Company Number: US-PFIZER INC-2012251300

PATIENT
  Age: 50 Year
  Sex: Male
  Weight: 81.63 kg

DRUGS (8)
  1. TIKOSYN [Suspect]
     Indication: ATRIAL FIBRILLATION
     Dosage: 500 ug, 2x/day
     Route: 048
     Dates: start: 201206
  2. TIKOSYN [Suspect]
     Indication: ATRIAL FLUTTER
  3. COUMADIN [Concomitant]
     Dosage: 5 mg, UNK
  4. PRAVASTATIN [Concomitant]
     Dosage: 20 mg, UNK
  5. FISH OIL [Concomitant]
     Dosage: UNK
  6. ASPIRIN [Concomitant]
     Dosage: 81 mg, 1x/day
  7. MULTIVITAMINS [Concomitant]
     Dosage: UNK
  8. ZANTAC [Concomitant]
     Dosage: 150 mg, 2x/day

REACTIONS (3)
  - Dyspnoea [Not Recovered/Not Resolved]
  - Fatigue [Not Recovered/Not Resolved]
  - Thirst [Not Recovered/Not Resolved]
